FAERS Safety Report 23051468 (Version 6)
Quarter: 2023Q4

REPORT INFORMATION
  Report Type: Spontaneous
  Country: US (occurrence: US)
  Receive Date: 20231010
  Receipt Date: 20231222
  Transmission Date: 20240110
  Serious: No
  Sender: FDA-Public Use
  Company Number: US-DAIICHI SANKYO, INC.-DSU-2023-141651AA

PATIENT
  Sex: Female

DRUGS (1)
  1. ENHERTU [Suspect]
     Active Substance: FAM-TRASTUZUMAB DERUXTECAN-NXKI
     Indication: Breast cancer metastatic
     Dosage: UNK
     Route: 065
     Dates: start: 202310

REACTIONS (14)
  - Feeling abnormal [Unknown]
  - Disturbance in attention [Unknown]
  - Nausea [Unknown]
  - Dyspepsia [Unknown]
  - Diarrhoea [Unknown]
  - Flatulence [Unknown]
  - Alopecia [Unknown]
  - Dehydration [Unknown]
  - Alopecia [Unknown]
  - Feeling abnormal [Unknown]
  - Illness [Unknown]
  - Lymphadenopathy [Unknown]
  - Anxiety [Unknown]
  - Nasopharyngitis [Unknown]
